FAERS Safety Report 13118718 (Version 3)
Quarter: 2018Q2

REPORT INFORMATION
  Report Type: Spontaneous
  Country: US (occurrence: US)
  Receive Date: 20170116
  Receipt Date: 20180607
  Transmission Date: 20180711
  Serious: Yes (Other)
  Sender: FDA-Public Use
  Company Number: US-ASTRAZENECA-2017SE02434

PATIENT
  Age: 57 Year
  Sex: Female
  Weight: 60.3 kg

DRUGS (28)
  1. FENOFIBRATE. [Concomitant]
     Active Substance: FENOFIBRATE
  2. LUNESTA [Concomitant]
     Active Substance: ESZOPICLONE
     Dosage: 3.0MG UNKNOWN
     Dates: start: 20111223
  3. TRAZODONE [Concomitant]
     Active Substance: TRAZODONE HYDROCHLORIDE
     Dosage: 100.0MG UNKNOWN
     Dates: start: 20120405
  4. SYNTHROID [Concomitant]
     Active Substance: LEVOTHYROXINE SODIUM
  5. NEXIUM [Suspect]
     Active Substance: ESOMEPRAZOLE MAGNESIUM
     Indication: GASTROOESOPHAGEAL REFLUX DISEASE
     Dosage: 40.0MG UNKNOWN
     Route: 048
     Dates: start: 20111207
  6. CRESTOR [Concomitant]
     Active Substance: ROSUVASTATIN CALCIUM
  7. CYMBALTA [Concomitant]
     Active Substance: DULOXETINE HYDROCHLORIDE
     Dates: start: 20120405
  8. XANAX/ALPRAZOLAM [Concomitant]
     Dosage: 1-3 TIMES A DAY
     Dates: start: 20120103
  9. PROTONIX [Suspect]
     Active Substance: PANTOPRAZOLE SODIUM
     Route: 065
  10. DESYREL [Concomitant]
     Active Substance: TRAZODONE HYDROCHLORIDE
  11. LYRICA [Concomitant]
     Active Substance: PREGABALIN
  12. PERCOCET [Concomitant]
     Active Substance: ACETAMINOPHEN\OXYCODONE HYDROCHLORIDE
     Dosage: 10-325 MG
     Dates: start: 20120111
  13. CARVEDILOL. [Concomitant]
     Active Substance: CARVEDILOL
     Indication: BLOOD PRESSURE ABNORMAL
  14. FUROSEMIDE. [Concomitant]
     Active Substance: FUROSEMIDE
     Indication: DIURETIC THERAPY
  15. PLAQUENIL [Concomitant]
     Active Substance: HYDROXYCHLOROQUINE SULFATE
  16. ESTRADIOL. [Concomitant]
     Active Substance: ESTRADIOL
  17. FENTANYL. [Concomitant]
     Active Substance: FENTANYL
     Indication: PAIN
  18. AMBIEN [Concomitant]
     Active Substance: ZOLPIDEM TARTRATE
  19. DURAGESIC/FENTANYL [Concomitant]
     Dosage: 50 MCG/HR PATCH EVERY 3 DAYS
     Dates: start: 20120111
  20. ZOLPIDEM [Concomitant]
     Active Substance: ZOLPIDEM\ZOLPIDEM TARTRATE
     Dosage: 10.0MG UNKNOWN
     Dates: start: 20120605
  21. NEXIUM [Suspect]
     Active Substance: ESOMEPRAZOLE MAGNESIUM
     Indication: GASTROOESOPHAGEAL REFLUX DISEASE
     Dosage: 40.0MG UNKNOWN
     Route: 048
     Dates: start: 2007, end: 2016
  22. PRILOSEC [Suspect]
     Active Substance: OMEPRAZOLE MAGNESIUM
     Route: 048
  23. NEXIUM [Suspect]
     Active Substance: ESOMEPRAZOLE MAGNESIUM
     Indication: GASTROOESOPHAGEAL REFLUX DISEASE
     Dosage: GENERIC 40 MG UNKNOWN
     Route: 065
  24. DEXILANT [Suspect]
     Active Substance: DEXLANSOPRAZOLE
     Route: 065
  25. PREVACID [Suspect]
     Active Substance: LANSOPRAZOLE
     Route: 065
  26. ZEGERID [Suspect]
     Active Substance: OMEPRAZOLE\SODIUM BICARBONATE
     Route: 065
  27. LISINOPRIL. [Concomitant]
     Active Substance: LISINOPRIL
  28. ZESTRIL [Concomitant]
     Active Substance: LISINOPRIL

REACTIONS (8)
  - Systemic lupus erythematosus [Unknown]
  - Chronic kidney disease [Unknown]
  - Lupus nephritis [Unknown]
  - Skin infection [Unknown]
  - Chronic kidney disease-mineral and bone disorder [Unknown]
  - Hypertension [Unknown]
  - Constipation [Unknown]
  - Acute kidney injury [Unknown]

NARRATIVE: CASE EVENT DATE: 2007
